FAERS Safety Report 13544463 (Version 1)
Quarter: 2017Q2

REPORT INFORMATION
  Report Type: Spontaneous
  Country: US (occurrence: US)
  Receive Date: 20170512
  Receipt Date: 20170512
  Transmission Date: 20170830
  Serious: No
  Sender: FDA-Public Use
  Company Number: None

PATIENT
  Age: 68 Year
  Sex: Female

DRUGS (1)
  1. HUMIRA [Suspect]
     Active Substance: ADALIMUMAB
     Indication: COLITIS ULCERATIVE
     Dosage: SEE EVENT 4 PENS DAY 1 , 2 PENS ON DAY 15, SUBCUTANEOUSLY
     Route: 058
     Dates: start: 20170420

REACTIONS (3)
  - Diarrhoea [None]
  - Abnormal faeces [None]
  - Myalgia [None]

NARRATIVE: CASE EVENT DATE: 20170420
